FAERS Safety Report 10175540 (Version 1)
Quarter: 2014Q2

REPORT INFORMATION
  Report Type: Spontaneous
  Country: US (occurrence: US)
  Receive Date: 20140516
  Receipt Date: 20140516
  Transmission Date: 20141212
  Serious: No
  Sender: FDA-Public Use
  Company Number: US-009507513-1405USA003295

PATIENT
  Sex: Female

DRUGS (3)
  1. PEGINTRON [Suspect]
     Indication: HEPATITIS C
     Dosage: REDIPEN, STRENGTH: 80/0.5 UNITS UNKNOWN, 80 MICROGRAM, QW
     Route: 058
     Dates: start: 201403
  2. RIBAPAK [Suspect]
     Indication: HEPATITIS C
  3. SOVALDI [Suspect]
     Indication: HEPATITIS C

REACTIONS (2)
  - Urinary tract infection [Unknown]
  - Diarrhoea [Unknown]
